FAERS Safety Report 6250398-7 (Version None)
Quarter: 2009Q2

REPORT INFORMATION
  Report Type: 
  Country: None (occurrence: None)
  Receive Date: 20090630
  Receipt Date: 20090626
  Transmission Date: 20091009
  Serious: Yes (Hospitalization)
  Sender: FDA-Public Use
  Company Number: IT-BRISTOL-MYERS SQUIBB COMPANY-14680656

PATIENT
  Age: 76 Year
  Sex: Male

DRUGS (7)
  1. COUMADIN [Suspect]
     Indication: PROPHYLAXIS
     Dosage: INTERRUPTED ON 8MAY09
     Route: 048
     Dates: start: 20080101
  2. FERROUS GLUCONATE [Concomitant]
  3. OMEPRAZOLE [Concomitant]
  4. CORDARONE [Concomitant]
  5. LASIX [Concomitant]
  6. TORVAST [Concomitant]
  7. PERINDOPRIL ERBUMINE [Concomitant]

REACTIONS (4)
  - ANAEMIA [None]
  - GASTROINTESTINAL HAEMORRHAGE [None]
  - INTERNATIONAL NORMALISED RATIO INCREASED [None]
  - RENAL FAILURE ACUTE [None]
